FAERS Safety Report 7184128-1 (Version None)
Quarter: 2010Q4

REPORT INFORMATION
  Report Type: 
  Country: None (occurrence: None)
  Receive Date: 20101222
  Receipt Date: 20101217
  Transmission Date: 20110411
  Serious: Yes (Death, Hospitalization, Disabling)
  Sender: FDA-Public Use
  Company Number: BR-US-EMD SERONO, INC.-7032681

PATIENT
  Sex: Female

DRUGS (7)
  1. REBIF [Suspect]
     Indication: RELAPSING-REMITTING MULTIPLE SCLEROSIS
     Dates: start: 20031102, end: 20101129
  2. ISORDIL [Concomitant]
  3. CARVEDILOL [Concomitant]
  4. PURAN T4 [Concomitant]
  5. ACETAMINOPHEN [Concomitant]
  6. HIRUDOID [Concomitant]
  7. VITAMIN TAB [Concomitant]

REACTIONS (3)
  - ACUTE MYOCARDIAL INFARCTION [None]
  - CARDIOGENIC SHOCK [None]
  - WALKING DISABILITY [None]
